FAERS Safety Report 11862014 (Version 1)
Quarter: 2015Q4

REPORT INFORMATION
  Report Type: Spontaneous
  Country: US (occurrence: US)
  Receive Date: 20151222
  Receipt Date: 20151222
  Transmission Date: 20160305
  Serious: Yes (Other)
  Sender: FDA-Public Use
  Company Number: US-ROCHE-642564

PATIENT
  Age: 55 Year
  Sex: Female
  Weight: 108.9 kg

DRUGS (3)
  1. PEGASYS [Suspect]
     Active Substance: PEGINTERFERON ALFA-2A
     Indication: HEPATITIS C
     Dosage: FORM: PREFILLED SYRINGE
     Route: 065
  2. LORTAB [Suspect]
     Active Substance: ACETAMINOPHEN\HYDROCODONE BITARTRATE
     Indication: RHEUMATOID ARTHRITIS
     Route: 065
  3. RIBASPHERE RIBAPAK [Suspect]
     Active Substance: RIBAVIRIN
     Indication: HEPATITIS C
     Route: 065

REACTIONS (12)
  - Rheumatoid arthritis [Not Recovered/Not Resolved]
  - Weight decreased [Unknown]
  - Suicidal ideation [Not Recovered/Not Resolved]
  - Depression [Unknown]
  - Injection site bruising [Unknown]
  - Hypoaesthesia [Unknown]
  - Dry skin [Unknown]
  - Urticaria [Not Recovered/Not Resolved]
  - Confusional state [Not Recovered/Not Resolved]
  - Pain in extremity [Not Recovered/Not Resolved]
  - Decreased appetite [Not Recovered/Not Resolved]
  - Heart rate irregular [Unknown]

NARRATIVE: CASE EVENT DATE: 20090615
